FAERS Safety Report 25950003 (Version 1)
Quarter: 2025Q4

REPORT INFORMATION
  Report Type: Spontaneous
  Country: US (occurrence: US)
  Receive Date: 20251022
  Receipt Date: 20251022
  Transmission Date: 20260117
  Serious: No
  Sender: GALDERMA
  Company Number: US-GALDERMA-US2025001555

PATIENT

DRUGS (3)
  1. AKLIEF [Suspect]
     Active Substance: TRIFAROTENE
     Indication: Acne
     Dosage: 1 DOSAGE FORM, QOD
     Route: 061
     Dates: start: 20250108, end: 202501
  2. AKLIEF [Suspect]
     Active Substance: TRIFAROTENE
     Dosage: 1 DOSAGE FORM, QD
     Route: 061
     Dates: start: 2025
  3. RINVOQ [Concomitant]
     Active Substance: UPADACITINIB
     Indication: Product used for unknown indication

REACTIONS (3)
  - Acne [Unknown]
  - Intentional product misuse [Recovered/Resolved]
  - Intentional underdose [Recovered/Resolved]

NARRATIVE: CASE EVENT DATE: 20250108
